FAERS Safety Report 4340037-4 (Version None)
Quarter: 2004Q2

REPORT INFORMATION
  Report Type: 
  Country: None (occurrence: None)
  Receive Date: 20040416
  Receipt Date: 20040326
  Transmission Date: 20050107
  Serious: Yes (Life-Threatening)
  Sender: FDA-Public Use
  Company Number: JP-ROCHE-362831

PATIENT
  Age: 61 Year
  Sex: Male

DRUGS (10)
  1. MIDAZOLAM HCL [Suspect]
     Indication: ANAESTHESIA
     Route: 041
     Dates: start: 20031227, end: 20031227
  2. MIDAZOLAM HCL [Suspect]
     Route: 041
     Dates: start: 20031227, end: 20031228
  3. SERENASE [Suspect]
     Indication: ANAESTHESIA
     Route: 041
     Dates: start: 20031227, end: 20031228
  4. SOLINASE [Concomitant]
     Indication: ACUTE MYOCARDIAL INFARCTION
     Route: 041
     Dates: start: 20031222, end: 20031222
  5. HEPARIN [Concomitant]
     Indication: ACUTE MYOCARDIAL INFARCTION
     Route: 042
     Dates: start: 20031222, end: 20031222
  6. MORPHINE [Concomitant]
     Indication: INTUBATION
     Route: 042
     Dates: start: 20031222, end: 20031227
  7. LIDOCAINE HYDROCHLORIDE [Concomitant]
     Indication: ACUTE MYOCARDIAL INFARCTION
     Route: 042
     Dates: start: 20031222, end: 20031222
  8. NICARDIPINE HYDROCHLORIDE [Concomitant]
     Route: 041
     Dates: start: 20031222, end: 20040122
  9. VECURONIUM BROMIDE [Concomitant]
     Indication: INTUBATION
     Route: 042
     Dates: start: 20031227, end: 20031227
  10. CEFTRIAXONE SODIUM [Concomitant]
     Indication: INFECTION PROPHYLAXIS
     Dosage: CONTINUOUS
     Route: 041
     Dates: start: 20031223, end: 20040106

REACTIONS (1)
  - HYPERTHERMIA MALIGNANT [None]
